FAERS Safety Report 20443146 (Version 1)
Quarter: 2022Q1

REPORT INFORMATION
  Report Type: Spontaneous
  Country: US (occurrence: None)
  Receive Date: 20220207
  Receipt Date: 20220207
  Transmission Date: 20220423
  Serious: No
  Sender: FDA-Public Use
  Company Number: None

PATIENT
  Age: 36 Year
  Sex: Female
  Weight: 73.35 kg

DRUGS (2)
  1. BUPROPION [Suspect]
     Active Substance: BUPROPION
     Indication: Depression
     Dates: start: 20211123, end: 20220123
  2. VALACYCLOVIR [Concomitant]

REACTIONS (3)
  - Vulvovaginal discomfort [None]
  - Heavy menstrual bleeding [None]
  - Heavy menstrual bleeding [None]

NARRATIVE: CASE EVENT DATE: 20220105
